FAERS Safety Report 21514625 (Version 2)
Quarter: 2022Q4

REPORT INFORMATION
  Report Type: Spontaneous
  Country: US (occurrence: US)
  Receive Date: 20221027
  Receipt Date: 20221118
  Transmission Date: 20230113
  Serious: Yes (Other)
  Sender: FDA-Public Use
  Company Number: US-TEVA-2022-US-2818729

PATIENT
  Age: 7 Decade
  Sex: Female

DRUGS (2)
  1. HYDROCHLOROTHIAZIDE [Suspect]
     Active Substance: HYDROCHLOROTHIAZIDE
     Indication: Blood pressure increased
     Dosage: 12.5 MILLIGRAM DAILY;
     Route: 065
  2. TRIAMCINOLONE [Concomitant]
     Active Substance: TRIAMCINOLONE
     Indication: Stasis dermatitis
     Dosage: ADDITIONAL INFO: ACTION TAKEN: DRUG CONTINUED
     Route: 065

REACTIONS (10)
  - Quality of life decreased [Recovering/Resolving]
  - Dermatitis [Recovered/Resolved]
  - Nausea [Unknown]
  - Headache [Unknown]
  - Fatigue [Recovered/Resolved]
  - Paraesthesia [Unknown]
  - Sleep disorder [Unknown]
  - Depressed mood [Unknown]
  - Rash pruritic [Recovered/Resolved]
  - Rash [Recovered/Resolved]
